FAERS Safety Report 24982188 (Version 1)
Quarter: 2025Q1

REPORT INFORMATION
  Report Type: Spontaneous
  Country: JP (occurrence: JP)
  Receive Date: 20250218
  Receipt Date: 20250218
  Transmission Date: 20250408
  Serious: Yes (Other)
  Sender: UCB
  Company Number: JP-UCBJ-CD202502002UCBPHAPROD

PATIENT
  Age: 5 Decade
  Sex: Male

DRUGS (2)
  1. VIMPAT [Suspect]
     Active Substance: LACOSAMIDE
     Indication: Temporal lobe epilepsy
     Dosage: 100 MILLIGRAM, DAILY
     Route: 048
  2. VIMPAT [Suspect]
     Active Substance: LACOSAMIDE
     Indication: Epilepsy

REACTIONS (2)
  - Epilepsy [Unknown]
  - Treatment noncompliance [Unknown]
